FAERS Safety Report 11945101 (Version 2)
Quarter: 2016Q1

REPORT INFORMATION
  Report Type: Spontaneous
  Country: US (occurrence: US)
  Receive Date: 20160125
  Receipt Date: 20160218
  Transmission Date: 20160526
  Serious: Yes (Other)
  Sender: FDA-Public Use
  Company Number: US-SA-2015SA168522

PATIENT
  Age: 59 Year
  Sex: Female

DRUGS (10)
  1. AUBAGIO [Suspect]
     Active Substance: TERIFLUNOMIDE
     Indication: MULTIPLE SCLEROSIS
     Route: 048
  2. ESTROGENS [Concomitant]
     Active Substance: ESTROGENS
  3. LEVOTHYROXINE SODIUM. [Concomitant]
     Active Substance: LEVOTHYROXINE SODIUM
  4. NUVIGIL [Concomitant]
     Active Substance: ARMODAFINIL
  5. ALPRAZOLAM. [Concomitant]
     Active Substance: ALPRAZOLAM
  6. VALTREX [Concomitant]
     Active Substance: VALACYCLOVIR HYDROCHLORIDE
  7. HYDROCODONE W/ACETAMINOPHEN [Concomitant]
     Active Substance: ACETAMINOPHEN\HYDROCODONE BITARTRATE
  8. ALBUTEROL. [Concomitant]
     Active Substance: ALBUTEROL
  9. KADIAN [Concomitant]
     Active Substance: MORPHINE SULFATE
  10. ZOLPIDEM TARTRATE. [Concomitant]
     Active Substance: ZOLPIDEM TARTRATE

REACTIONS (17)
  - Dysstasia [Unknown]
  - Feeling hot [Unknown]
  - Skin discolouration [Unknown]
  - Pyrexia [Unknown]
  - Paraesthesia [Unknown]
  - Activities of daily living impaired [Unknown]
  - Fatigue [Unknown]
  - Hypoaesthesia [Unknown]
  - Depressed mood [Unknown]
  - Skin exfoliation [Unknown]
  - Gait disturbance [Unknown]
  - Limb injury [Unknown]
  - Condition aggravated [Unknown]
  - Unevaluable event [Unknown]
  - Burning sensation [Unknown]
  - Depression [Unknown]
  - Pain in extremity [Unknown]
